FAERS Safety Report 9786031 (Version 1)
Quarter: 2013Q4

REPORT INFORMATION
  Report Type: Spontaneous
  Country: US (occurrence: US)
  Receive Date: 20131227
  Receipt Date: 20131227
  Transmission Date: 20140711
  Serious: Yes (Other)
  Sender: FDA-Public Use
  Company Number: US-BIOMARINAP-US-2013-102163

PATIENT
  Age: 7 Month
  Sex: Male

DRUGS (3)
  1. ALDURAZYME [Suspect]
     Indication: MUCOPOLYSACCHARIDOSIS I
     Dosage: 5.8 MG, QW
     Route: 042
     Dates: start: 20130130
  2. TYLENOL                            /00020001/ [Concomitant]
     Indication: PREMEDICATION
     Dosage: 100 MG, UNK
     Route: 048
  3. BENADRYL                           /00000402/ [Concomitant]
     Indication: PREMEDICATION
     Dosage: 5 MG, UNK
     Route: 048

REACTIONS (5)
  - Anaphylactic reaction [Not Recovered/Not Resolved]
  - Urticaria [Not Recovered/Not Resolved]
  - Flushing [Not Recovered/Not Resolved]
  - Swelling face [Not Recovered/Not Resolved]
  - Antibody test positive [Not Recovered/Not Resolved]
